FAERS Safety Report 4968940-2 (Version None)
Quarter: 2006Q2

REPORT INFORMATION
  Report Type: 
  Country: None (occurrence: None)
  Receive Date: 20060411
  Receipt Date: 20051110
  Transmission Date: 20061013
  Serious: Yes (Hospitalization, Other)
  Sender: FDA-Public Use
  Company Number: US-MERCK-0511USA02052

PATIENT
  Age: 61 Year
  Sex: Female
  Weight: 57 kg

DRUGS (2)
  1. VIOXX [Suspect]
     Indication: OSTEOARTHRITIS
     Route: 048
     Dates: start: 20000904, end: 20030109
  2. INSULIN [Concomitant]
     Route: 065

REACTIONS (9)
  - ARTERIAL STENT INSERTION [None]
  - COUGH [None]
  - DIABETIC KETOACIDOSIS [None]
  - LIPIDS INCREASED [None]
  - MYALGIA [None]
  - MYOCARDIAL INFARCTION [None]
  - PANCREATITIS [None]
  - PYREXIA [None]
  - WOUND [None]
